FAERS Safety Report 23421370 (Version 1)
Quarter: 2024Q1

REPORT INFORMATION
  Report Type: Spontaneous
  Country: US (occurrence: None)
  Receive Date: 20240118
  Receipt Date: 20240118
  Transmission Date: 20240410
  Serious: Yes (Death)
  Sender: FDA-Public Use
  Company Number: None

PATIENT
  Age: 66 Year
  Sex: Female

DRUGS (5)
  1. CAPECITABINE [Suspect]
     Active Substance: CAPECITABINE
     Indication: Infection
     Dosage: FREQUENCY : TWICE A DAY; FOR 14 DAYS?
     Route: 048
     Dates: start: 20230315
  2. CYCLOSPORINE [Concomitant]
     Active Substance: CYCLOSPORINE
  3. DRONABINOL [Concomitant]
     Active Substance: DRONABINOL
  4. DULOXETINE [Concomitant]
     Active Substance: DULOXETINE
  5. MAGNESIUM OXIDE [Concomitant]
     Active Substance: MAGNESIUM OXIDE

REACTIONS (1)
  - Death [None]

NARRATIVE: CASE EVENT DATE: 20240117
